FAERS Safety Report 11598367 (Version 1)
Quarter: 2015Q4

REPORT INFORMATION
  Report Type: Report from Study
  Country: ZA (occurrence: ZA)
  Receive Date: 20151006
  Receipt Date: 20151006
  Transmission Date: 20160304
  Serious: Yes (Hospitalization, Other)
  Sender: FDA-Public Use
  Company Number: PHHY2015ZA117957

PATIENT
  Age: 66 Year
  Sex: Female

DRUGS (6)
  1. VITAMIN D [Concomitant]
     Active Substance: CHOLECALCIFEROL
     Indication: PRODUCT USED FOR UNKNOWN INDICATION
     Route: 065
  2. ACLASTA [Suspect]
     Active Substance: ZOLEDRONIC ACID
     Dosage: 1 DF, (5MG/100ML)
     Route: 042
     Dates: start: 2014
  3. CALTRATE WITH VITAMIN D [Concomitant]
     Active Substance: CALCIUM CARBONATE\CHOLECALCIFEROL
     Indication: PRODUCT USED FOR UNKNOWN INDICATION
     Route: 065
  4. ACLASTA [Suspect]
     Active Substance: ZOLEDRONIC ACID
     Dosage: 1 DF, (5MG/100ML)
     Route: 042
     Dates: start: 2012
  5. ACLASTA [Suspect]
     Active Substance: ZOLEDRONIC ACID
     Indication: OSTEOPOROSIS
     Dosage: 1 DF, (5MG/100ML)
     Route: 042
     Dates: start: 2011
  6. ACLASTA [Suspect]
     Active Substance: ZOLEDRONIC ACID
     Dosage: 1 DF, (5MG/100ML)
     Route: 042
     Dates: start: 2013

REACTIONS (8)
  - Spinal fracture [Unknown]
  - Sensory loss [Unknown]
  - Hypokinesia [Unknown]
  - Bone density decreased [Unknown]
  - Gastric haemorrhage [Recovered/Resolved]
  - Neck pain [Recovering/Resolving]
  - Fall [Unknown]
  - Depressed mood [Unknown]

NARRATIVE: CASE EVENT DATE: 20150707
